FAERS Safety Report 16706910 (Version 2)
Quarter: 2019Q3

REPORT INFORMATION
  Report Type: Report from Study
  Country: US (occurrence: US)
  Receive Date: 20190815
  Receipt Date: 20190829
  Transmission Date: 20191004
  Serious: Yes (Hospitalization, Other)
  Sender: FDA-Public Use
  Company Number: US-BIOGEN-2019BI00772250

PATIENT
  Age: 16 Year
  Sex: Female

DRUGS (2)
  1. SPINRAZA [Suspect]
     Active Substance: NUSINERSEN
     Indication: SPINAL MUSCULAR ATROPHY
     Route: 037
     Dates: start: 20190118
  2. SPINRAZA [Suspect]
     Active Substance: NUSINERSEN
     Route: 037
     Dates: start: 20190319

REACTIONS (7)
  - Vascular device infection [Unknown]
  - Procedural pain [Unknown]
  - Staphylococcal infection [Unknown]
  - Cerebrospinal fluid reservoir placement [Recovered/Resolved]
  - Meningitis bacterial [Unknown]
  - Post lumbar puncture syndrome [Unknown]
  - Vision blurred [Unknown]

NARRATIVE: CASE EVENT DATE: 20190402
